FAERS Safety Report 5180942-2 (Version None)
Quarter: 2006Q4

REPORT INFORMATION
  Report Type: 
  Country: None (occurrence: None)
  Receive Date: 20061215
  Receipt Date: 20061215
  Transmission Date: 20070319
  Serious: Yes (Other)
  Sender: FDA-Public Use
  Company Number: None

PATIENT
  Age: 45 Year
  Sex: Female
  Weight: 63.5036 kg

DRUGS (1)
  1. ACETAMINOPHEN [Suspect]
     Indication: MYALGIA
     Dosage: 2        6 HOURS   PO
     Route: 048
     Dates: start: 20061020, end: 20061022

REACTIONS (2)
  - POOR QUALITY DRUG ADMINISTERED [None]
  - RECTAL HAEMORRHAGE [None]
